FAERS Safety Report 23420046 (Version 2)
Quarter: 2024Q1

REPORT INFORMATION
  Report Type: Report from Study
  Country: US (occurrence: US)
  Receive Date: 20240119
  Receipt Date: 20240119
  Transmission Date: 20240410
  Serious: Yes (Hospitalization)
  Sender: FDA-Public Use
  Company Number: US-JNJFOC-20240128959

PATIENT
  Age: 66 Year
  Sex: Female

DRUGS (2)
  1. STELARA [Suspect]
     Active Substance: USTEKINUMAB
     Indication: Crohn^s disease
     Route: 040
     Dates: start: 20231026
  2. STELARA [Suspect]
     Active Substance: USTEKINUMAB
     Dosage: 1 ML
     Route: 058
     Dates: start: 20231221

REACTIONS (5)
  - Internal haemorrhage [Unknown]
  - Mobility decreased [Unknown]
  - Haemorrhoids [Unknown]
  - Joint stiffness [Not Recovered/Not Resolved]
  - Drug level decreased [Unknown]
